FAERS Safety Report 18330437 (Version 1)
Quarter: 2020Q3

REPORT INFORMATION
  Report Type: Spontaneous
  Country: DE (occurrence: DE)
  Receive Date: 20200930
  Receipt Date: 20200930
  Transmission Date: 20201103
  Serious: Yes (Hospitalization)
  Sender: FDA-Public Use
  Company Number: DE-MYLANLABS-2020M1081860

PATIENT
  Age: 61 Year
  Sex: Female
  Weight: 58 kg

DRUGS (10)
  1. METOPROLOL. [Suspect]
     Active Substance: METOPROLOL
     Indication: PRODUCT USED FOR UNKNOWN INDICATION
     Dosage: 95 MILLIGRAM, QD (95 MG, 1?0?0?0, RETARD?TABLETTEN)
     Route: 048
  2. PANTOPRAZOL                        /01263201/ [Concomitant]
     Active Substance: PANTOPRAZOLE
     Dosage: 40 MILLIGRAM, QD (40 MG, 1?0?0?0, TABLETTEN)
     Route: 048
  3. BUDESONIDE. [Concomitant]
     Active Substance: BUDESONIDE
     Dosage: 3.0 MILLIGRAM (3.0 MG, 3?0?0?0, KAPSELN)
     Route: 048
  4. INSULIN DETEMIR [Concomitant]
     Active Substance: INSULIN DETEMIR
     Dosage: 300 IE, NACH SCHEMA, AMPULLEN
     Route: 058
  5. VENLAFAXINE [Concomitant]
     Active Substance: VENLAFAXINE HYDROCHLORIDE
     Dosage: 100 MILLIGRAM (100 MG, 2?0?0?0, RETARD?KAPSELN)
     Route: 048
  6. MESALAZIN [Concomitant]
     Active Substance: MESALAMINE
     Dosage: 500 MILLIGRAM (500 MG, 2?0?0?0, TABLETTEN)
     Route: 048
  7. INSULIN LISPRO [Concomitant]
     Active Substance: INSULIN LISPRO
     Dosage: 300 IE, NACH SCHEMA, AMPULLEN
     Route: 058
  8. METHYLPREDNISOLONE. [Concomitant]
     Active Substance: METHYLPREDNISOLONE
     Dosage: 1 MILLIGRAM (1.0 MG, 2X LOKAL, SALBE)
     Route: 061
  9. MOXONIDIN [Concomitant]
     Active Substance: MOXONIDINE
     Dosage: 0.3 MILLIGRAM, QD (0.3 MG, 1?0?0?0, TABLETTEN)
     Route: 048
  10. CALCIUM CARBONATE W/COLECALCIFEROL [Concomitant]
     Active Substance: CALCIUM CARBONATE\CHOLECALCIFEROL
     Dosage: UNK UNK, QD (1000|880 MG/IE, 1?0?0?0, BRAUSETABLETTEN)
     Route: 048

REACTIONS (5)
  - Condition aggravated [Unknown]
  - Feeling hot [Unknown]
  - Localised infection [Unknown]
  - Skin ulcer [Unknown]
  - Inflammation [Unknown]
